FAERS Safety Report 6294756-3 (Version None)
Quarter: 2009Q3

REPORT INFORMATION
  Report Type: 
  Country: None (occurrence: None)
  Receive Date: 20090803
  Receipt Date: 20090730
  Transmission Date: 20100115
  Serious: Yes (Life-Threatening)
  Sender: FDA-Public Use
  Company Number: GB-JNJFOC-20090707647

PATIENT
  Sex: Male

DRUGS (6)
  1. RISPERDAL CONSTA [Suspect]
     Indication: SCHIZOPHRENIA
     Route: 030
  2. RISPERDAL [Suspect]
     Indication: SCHIZOPHRENIA
     Dosage: 1MG A.M. 2MG P.M.
     Route: 048
  3. CIMETIDINE [Concomitant]
     Indication: GASTROOESOPHAGEAL REFLUX DISEASE
     Route: 065
  4. AZITHROMYCIN [Concomitant]
     Route: 065
  5. DIAZEPAM [Concomitant]
     Route: 065
  6. COTRIM [Concomitant]
     Route: 065

REACTIONS (8)
  - BLOOD SODIUM DECREASED [None]
  - CEREBRAL ATROPHY [None]
  - COMPARTMENT SYNDROME [None]
  - DYSARTHRIA [None]
  - EXTENSOR PLANTAR RESPONSE [None]
  - HYPERREFLEXIA [None]
  - HYPOTONIA [None]
  - LOSS OF CONSCIOUSNESS [None]
